FAERS Safety Report 8314621-7 (Version None)
Quarter: 2012Q2

REPORT INFORMATION
  Report Type: 
  Country: None (occurrence: None)
  Receive Date: 20120426
  Receipt Date: 20120420
  Transmission Date: 20120825
  Serious: Yes (Other)
  Sender: FDA-Public Use
  Company Number: US-INCYTE CORPORATION-2012IN000447

PATIENT
  Sex: Male
  Weight: 21.94 kg

DRUGS (16)
  1. ERYTHROMYCIN [Concomitant]
  2. ALLEGRA [Concomitant]
     Dosage: 180 MG, QD
     Route: 048
  3. VITAMIN B6 [Concomitant]
     Dosage: 100 MG, QD
     Route: 048
  4. JAKAFI [Suspect]
     Dosage: 20 MG, BID
     Route: 048
     Dates: start: 20120101
  5. VITAMIN B COMPLEX CAP [Concomitant]
     Dosage: UNK, QD
     Route: 048
  6. INTERFERON ALFA [Concomitant]
  7. FLUTICASONE PROPIONATE [Concomitant]
     Dosage: 2 SPRAYS, BID
     Route: 045
  8. NIASPAN [Concomitant]
     Dosage: 1000 MG, QD
     Route: 048
  9. JAKAFI [Suspect]
     Indication: POLYCYTHAEMIA VERA
     Dosage: 15 MG, BID
     Route: 048
     Dates: start: 20120214
  10. NITROGLYCERIN [Concomitant]
     Route: 048
  11. ASPIRIN [Concomitant]
     Dosage: 81 MG, QD
     Route: 048
  12. CHOLESTYRAMINE [Concomitant]
     Dosage: 1 IU, QD
     Route: 048
  13. IMDUR [Concomitant]
     Dosage: 30 MG, QD
     Route: 048
  14. CALCIUM [Concomitant]
     Dosage: 500 MG, QD
     Route: 048
  15. OMEPRAZOLE [Concomitant]
     Route: 048
  16. XANAX [Concomitant]
     Indication: ANXIETY
     Dosage: 1 MG, BID PRN
     Route: 048

REACTIONS (1)
  - EPISTAXIS [None]
